FAERS Safety Report 12481372 (Version 1)
Quarter: 2016Q2

REPORT INFORMATION
  Report Type: Spontaneous
  Country: US (occurrence: US)
  Receive Date: 20160620
  Receipt Date: 20160620
  Transmission Date: 20160815
  Serious: No
  Sender: FDA-Public Use
  Company Number: US-BAUSCH-BL-2015-019080

PATIENT
  Sex: Male

DRUGS (3)
  1. PROVENGE [Suspect]
     Active Substance: SIPULEUCEL-T
     Indication: PROSTATE CANCER
     Dosage: FIRST INFUSION
     Route: 042
  2. PROVENGE [Suspect]
     Active Substance: SIPULEUCEL-T
     Dosage: THIRD INFUSION
     Route: 042
     Dates: start: 20150717, end: 20150717
  3. PROVENGE [Suspect]
     Active Substance: SIPULEUCEL-T
     Dosage: SECOND INFUSION
     Route: 042

REACTIONS (6)
  - Myalgia [Not Recovered/Not Resolved]
  - Pyrexia [Recovered/Resolved]
  - Insomnia [Not Recovered/Not Resolved]
  - Fatigue [Not Recovered/Not Resolved]
  - Arthralgia [Not Recovered/Not Resolved]
  - Bone pain [Not Recovered/Not Resolved]

NARRATIVE: CASE EVENT DATE: 201507
